FAERS Safety Report 6177137-2 (Version None)
Quarter: 2009Q2

REPORT INFORMATION
  Report Type: 
  Country: None (occurrence: None)
  Receive Date: 20090430
  Receipt Date: 20090430
  Transmission Date: 20091009
  Serious: Yes (Life-Threatening)
  Sender: FDA-Public Use
  Company Number: None

PATIENT
  Age: 58 Year
  Sex: Female
  Weight: 59.8748 kg

DRUGS (2)
  1. VITAMIN D [Suspect]
     Indication: BLEPHARITIS
     Dosage: 50,000 IU ONCE A WEEK PO
     Route: 048
     Dates: start: 20090101, end: 20090128
  2. VITAMIN D [Suspect]
     Indication: OSTEOPENIA
     Dosage: 50,000 IU ONCE A WEEK PO
     Route: 048
     Dates: start: 20090101, end: 20090128

REACTIONS (7)
  - ANXIETY [None]
  - DIZZINESS [None]
  - FEELING ABNORMAL [None]
  - INSOMNIA [None]
  - MALAISE [None]
  - PALPITATIONS [None]
  - TREMOR [None]
